FAERS Safety Report 23793382 (Version 9)
Quarter: 2024Q4

REPORT INFORMATION
  Report Type: Report from Study
  Country: CN (occurrence: CN)
  Receive Date: 20240429
  Receipt Date: 20241015
  Transmission Date: 20250115
  Serious: Yes (Hospitalization, Other)
  Sender: TAKEDA
  Company Number: CN-TAKEDA-2023TUS092812

PATIENT
  Age: 70 Year
  Sex: Male
  Weight: 59 kg

DRUGS (4)
  1. IXAZOMIB [Suspect]
     Active Substance: IXAZOMIB
     Indication: Plasma cell myeloma
     Dosage: 4 MILLIGRAM, 1/WEEK
     Route: 048
     Dates: start: 20210901, end: 20240122
  2. DEXAMETHASONE [Concomitant]
     Active Substance: DEXAMETHASONE
     Indication: Plasma cell myeloma
     Dosage: 7.5 MILLIGRAM, TID
     Route: 048
     Dates: start: 20230328
  3. HYDROTALCITE [Concomitant]
     Active Substance: HYDROTALCITE
     Indication: Prophylaxis
     Dosage: 1 GRAM, TID
     Route: 048
     Dates: start: 20230328
  4. LENALIDOMIDE [Concomitant]
     Active Substance: LENALIDOMIDE
     Indication: Plasma cell myeloma
     Dosage: 25 MILLIGRAM, QOD
     Route: 048
     Dates: start: 20221214

REACTIONS (7)
  - Hypocalcaemia [Recovered/Resolved]
  - Pneumonia [Recovered/Resolved]
  - Vomiting [Recovered/Resolved]
  - Nausea [Recovered/Resolved]
  - Blood creatinine increased [Not Recovered/Not Resolved]
  - Anaemia [Not Recovered/Not Resolved]
  - Beta 2 microglobulin increased [Not Recovered/Not Resolved]

NARRATIVE: CASE EVENT DATE: 20230328
